FAERS Safety Report 6809392-7 (Version None)
Quarter: 2010Q2

REPORT INFORMATION
  Report Type: 
  Country: None (occurrence: None)
  Receive Date: 20100630
  Receipt Date: 20100622
  Transmission Date: 20101027
  Serious: Yes (Other)
  Sender: FDA-Public Use
  Company Number: US-ASTRAZENECA-2006UW18471

PATIENT
  Age: 53 Year
  Sex: Female
  Weight: 65.8 kg

DRUGS (2)
  1. SEROQUEL [Suspect]
     Indication: INSOMNIA
     Route: 048
     Dates: start: 20030730, end: 20051028
  2. RISPERDAL [Suspect]
     Indication: INSOMNIA
     Route: 048
     Dates: start: 20020509, end: 20060516

REACTIONS (9)
  - CELLULITIS [None]
  - CEREBROVASCULAR ACCIDENT [None]
  - CONVULSION [None]
  - GRAND MAL CONVULSION [None]
  - HYPOAESTHESIA [None]
  - MOVEMENT DISORDER [None]
  - MYOCARDIAL INFARCTION [None]
  - PANCREATITIS [None]
  - WEIGHT INCREASED [None]
